FAERS Safety Report 7343188-5 (Version None)
Quarter: 2011Q1

REPORT INFORMATION
  Report Type: 
  Country: None (occurrence: None)
  Receive Date: 20110310
  Receipt Date: 20110302
  Transmission Date: 20110831
  Serious: Yes (Hospitalization)
  Sender: FDA-Public Use
  Company Number: GB-MILLENNIUM PHARMACEUTICALS, INC.-2010-06161

PATIENT

DRUGS (10)
  1. DOXORUBICIN [Suspect]
     Indication: MULTIPLE MYELOMA
     Dosage: 9 MG/M2, UNK
     Dates: start: 20101116
  2. LEVOTHYROXINE [Concomitant]
     Indication: HYPOTHYROIDISM
     Dosage: 100 UG, UNK
     Route: 048
  3. AMITRIPTYLINE [Concomitant]
     Indication: NEURALGIA
     Dosage: 10 MG, UNK
     Route: 048
  4. VELCADE [Suspect]
     Indication: MULTIPLE MYELOMA
     Dosage: 1 MG/M2, UNK
     Dates: start: 20101116
  5. METOCLOPRAMIDE HCL [Concomitant]
     Indication: NAUSEA
     Dosage: 10 MG, UNK
  6. COTRIM [Concomitant]
     Indication: SUPPORTIVE CARE
     Dosage: 480 MG, UNK
  7. DEXAMETHASONE [Suspect]
     Indication: MULTIPLE MYELOMA
     Dosage: 40 MG, UNK
     Dates: start: 20101117
  8. ASPIRIN [Concomitant]
     Indication: PROPHYLAXIS
     Dosage: 75 MG, UNK
     Route: 048
     Dates: start: 20020101
  9. ALLOPURINOL [Concomitant]
     Indication: SUPPORTIVE CARE
     Dosage: 100 MG, UNK
     Route: 048
     Dates: start: 20101116
  10. ACYCLOVIR [Concomitant]
     Indication: SUPPORTIVE CARE
     Dosage: 200 MG, UNK
     Route: 048
     Dates: start: 20101116

REACTIONS (1)
  - ATRIAL FIBRILLATION [None]
